FAERS Safety Report 19265183 (Version 1)
Quarter: 2021Q2

REPORT INFORMATION
  Report Type: Spontaneous
  Country: SK (occurrence: SK)
  Receive Date: 20210517
  Receipt Date: 20210517
  Transmission Date: 20210717
  Serious: Yes (Other)
  Sender: FDA-Public Use
  Company Number: SK-PFIZER INC-2021512769

PATIENT

DRUGS (2)
  1. GENTAMICIN. [Suspect]
     Active Substance: GENTAMICIN
     Route: 063
  2. CLINDAMYCIN. [Suspect]
     Active Substance: CLINDAMYCIN
     Dosage: UNK
     Route: 063

REACTIONS (2)
  - Exposure via breast milk [Unknown]
  - Enterocolitis haemorrhagic [Unknown]
